APPROVED DRUG PRODUCT: COMBOGESIC IV
Active Ingredient: ACETAMINOPHEN; IBUPROFEN SODIUM
Strength: 1GM/100ML (10MG/ML);EQ 300MG BASE/100ML (EQ 3MG BASE/ML)
Dosage Form/Route: SOLUTION;INTRAVENOUS
Application: N215320 | Product #001
Applicant: HIKMA PHARMACEUTICALS USA INC
Approved: Oct 17, 2023 | RLD: Yes | RS: Yes | Type: RX

PATENTS:
Patent 12220392 | Expires: Oct 26, 2031
Patent 12220392 | Expires: Oct 26, 2031
Patent 12083087 | Expires: Jul 17, 2035
Patent 12083087 | Expires: Jul 17, 2035
Patent 11446266 | Expires: Oct 26, 2031
Patent 11446266 | Expires: Oct 26, 2031
Patent 11896567 | Expires: Oct 26, 2031
Patent 11896567 | Expires: Oct 26, 2031
Patent 11213498 | Expires: Jan 14, 2036
Patent 11389416 | Expires: Jul 17, 2035

EXCLUSIVITY:
Code: NP | Date: Oct 17, 2026